FAERS Safety Report 8509422-0 (Version None)
Quarter: 2012Q3

REPORT INFORMATION
  Report Type: 
  Country: None (occurrence: None)
  Receive Date: 20120713
  Receipt Date: 20120709
  Transmission Date: 20120928
  Serious: Yes (Hospitalization)
  Sender: FDA-Public Use
  Company Number: CA-ROCHE-1086753

PATIENT
  Sex: Female
  Weight: 49.94 kg

DRUGS (4)
  1. CELEBREX [Concomitant]
  2. METHOTREXATE [Concomitant]
  3. SYNTHROID [Concomitant]
  4. MABTHERA [Suspect]
     Indication: RHEUMATOID ARTHRITIS
     Route: 042
     Dates: start: 20111011, end: 20111025

REACTIONS (4)
  - PYREXIA [None]
  - OROPHARYNGEAL PAIN [None]
  - DEHYDRATION [None]
  - LYMPHADENOPATHY [None]
